FAERS Safety Report 17505090 (Version 3)
Quarter: 2022Q4

REPORT INFORMATION
  Report Type: Spontaneous
  Country: FR (occurrence: FR)
  Receive Date: 20200305
  Receipt Date: 20221130
  Transmission Date: 20230113
  Serious: Yes (Other)
  Sender: FDA-Public Use
  Company Number: None

PATIENT
  Age: 44 Year
  Sex: Female
  Weight: 68.5 kg

DRUGS (1)
  1. CASPOFUNGIN ACETATE [Interacting]
     Active Substance: CASPOFUNGIN ACETATE
     Indication: Candida infection
     Dosage: 50 MILLIGRAM, QD, POWDER FOR SOLUTION FOR INFUSION
     Route: 042
     Dates: start: 20180315

REACTIONS (3)
  - Drug ineffective [Recovered/Resolved]
  - Drug-device interaction [Unknown]
  - Product use issue [Unknown]

NARRATIVE: CASE EVENT DATE: 20180324
